FAERS Safety Report 4322543-1 (Version None)
Quarter: 2004Q1

REPORT INFORMATION
  Report Type: 
  Country: None (occurrence: None)
  Receive Date: 20040322
  Receipt Date: 20040322
  Transmission Date: 20041129
  Serious: Yes (Other)
  Sender: FDA-Public Use
  Company Number: None

PATIENT
  Age: 82 Year
  Sex: Male
  Weight: 61.7 kg

DRUGS (6)
  1. DONEPEZIL HCL [Suspect]
  2. PAROXETINE HCL [Concomitant]
  3. SIMVASTATIN [Concomitant]
  4. MELOXICAM [Concomitant]
  5. FLUNISOLIDE NASAL INH [Concomitant]
  6. FINASTERIDE [Concomitant]

REACTIONS (1)
  - DIZZINESS [None]
